FAERS Safety Report 13240563 (Version 1)
Quarter: 2017Q1

REPORT INFORMATION
  Report Type: Spontaneous
  Country: US (occurrence: US)
  Receive Date: 20170216
  Receipt Date: 20170216
  Transmission Date: 20170428
  Serious: No
  Sender: FDA-Public Use
  Company Number: US-RELYPSA-RLY2016003774

PATIENT
  Sex: Male

DRUGS (8)
  1. FISH OIL [Concomitant]
     Active Substance: FISH OIL
  2. VELTASSA [Suspect]
     Active Substance: PATIROMER
     Dosage: 8.4 G, QD
     Route: 048
     Dates: start: 20161122
  3. CLOPIDOGREL [Concomitant]
     Active Substance: CLOPIDOGREL BISULFATE
  4. VELTASSA [Suspect]
     Active Substance: PATIROMER
     Dosage: 8.4 G, BID
     Route: 065
     Dates: start: 20161027, end: 20161122
  5. AMLODIPINE [Concomitant]
     Active Substance: AMLODIPINE BESYLATE
  6. LEVOTHYROXIN [Concomitant]
     Active Substance: LEVOTHYROXINE
  7. LISINOPRIL. [Concomitant]
     Active Substance: LISINOPRIL
  8. VELTASSA [Suspect]
     Active Substance: PATIROMER
     Indication: BLOOD POTASSIUM INCREASED
     Dosage: 8.4 G, QD
     Route: 048
     Dates: start: 20160829

REACTIONS (2)
  - Constipation [Unknown]
  - Drug ineffective [Recovered/Resolved]

NARRATIVE: CASE EVENT DATE: 2016
